FAERS Safety Report 5213752-8 (Version None)
Quarter: 2007Q1

REPORT INFORMATION
  Report Type: 
  Country: None (occurrence: None)
  Receive Date: 20070119
  Receipt Date: 20070109
  Transmission Date: 20070707
  Serious: Yes (Hospitalization)
  Sender: FDA-Public Use
  Company Number: IN-PFIZER INC-2006156071

PATIENT
  Sex: Male
  Weight: 50 kg

DRUGS (2)
  1. SU-011,248 [Suspect]
     Indication: GASTROINTESTINAL STROMAL TUMOUR
     Route: 048
  2. CLARITHROMYCIN [Concomitant]
     Route: 048
     Dates: start: 20061211, end: 20061215

REACTIONS (4)
  - DIZZINESS [None]
  - DYSPNOEA [None]
  - HEADACHE [None]
  - VOMITING [None]
